FAERS Safety Report 11037613 (Version 2)
Quarter: 2015Q2

REPORT INFORMATION
  Report Type: Spontaneous
  Country: JP (occurrence: JP)
  Receive Date: 20150416
  Receipt Date: 20150422
  Transmission Date: 20150821
  Serious: No
  Sender: FDA-Public Use
  Company Number: JP-SHIONOGI, INC-2015000477

PATIENT
  Age: 60 Year
  Sex: Male

DRUGS (2)
  1. FUTHAN [Suspect]
     Active Substance: NAFAMOSTAT MESYLATE
     Indication: PANCREATITIS ACUTE
     Route: 013
     Dates: start: 201504, end: 20150408
  2. FINIBAX [Suspect]
     Active Substance: DORIPENEM MONOHYDRATE
     Indication: PANCREATITIS ACUTE
     Dosage: 0.25 G, TID
     Route: 013
     Dates: start: 201504, end: 20150408

REACTIONS (1)
  - Blood bilirubin increased [Recovered/Resolved]

NARRATIVE: CASE EVENT DATE: 201504
